FAERS Safety Report 8794242 (Version 2)
Quarter: 2012Q4

REPORT INFORMATION
  Report Type: 
  Country: IT (occurrence: IT)
  Receive Date: 20120918
  Receipt Date: 20121018
  Transmission Date: 20130627
  Serious: Yes (Hospitalization)
  Sender: FDA-Public Use
  Company Number: IT-BAYER-2012-095801

PATIENT
  Age: 69 Year
  Sex: Female

DRUGS (3)
  1. LASONIL [Suspect]
     Indication: CONTUSION
     Dosage: UNK
     Route: 061
     Dates: start: 20120730, end: 20120730
  2. TEGRETOL [Concomitant]
     Dosage: Daily dose 900 mg
  3. PROVISACOR [Concomitant]
     Dosage: Daily dose 10 mg

REACTIONS (1)
  - Rash macular [Recovering/Resolving]
